FAERS Safety Report 21982744 (Version 2)
Quarter: 2023Q1

REPORT INFORMATION
  Report Type: Spontaneous
  Country: JP (occurrence: JP)
  Receive Date: 20230213
  Receipt Date: 20230313
  Transmission Date: 20230418
  Serious: Yes (Other)
  Sender: FDA-Public Use
  Company Number: JP-NAPPMUNDI-GBR-2023-0104862

PATIENT
  Age: 76 Year
  Sex: Male

DRUGS (1)
  1. FOLOTYN [Suspect]
     Active Substance: PRALATREXATE
     Indication: Peripheral T-cell lymphoma unspecified
     Dosage: 15 MILLIGRAM/SQ. METER (WEEKLY)
     Route: 042

REACTIONS (2)
  - Cholangitis [Unknown]
  - Cytopenia [Unknown]
